FAERS Safety Report 11497801 (Version 2)
Quarter: 2015Q4

REPORT INFORMATION
  Report Type: Spontaneous
  Country: US (occurrence: US)
  Receive Date: 20150911
  Receipt Date: 20151023
  Transmission Date: 20160304
  Serious: Yes (Hospitalization)
  Sender: FDA-Public Use
  Company Number: US-INCYTE CORPORATION-2015IN004454

PATIENT
  Sex: Male
  Weight: 77 kg

DRUGS (1)
  1. JAKAFI [Suspect]
     Active Substance: RUXOLITINIB
     Indication: MYELOFIBROSIS
     Dosage: 10 MG, BID
     Route: 048
     Dates: start: 20150120

REACTIONS (5)
  - Hip fracture [Unknown]
  - Fall [Unknown]
  - Haematoma [Unknown]
  - Drug dose omission [Unknown]
  - Platelet count decreased [Unknown]
